FAERS Safety Report 4705124-7 (Version None)
Quarter: 2005Q3

REPORT INFORMATION
  Report Type: 
  Country: None (occurrence: None)
  Receive Date: 20050701
  Receipt Date: 20050622
  Transmission Date: 20060218
  Serious: Yes (Death, Hospitalization)
  Sender: FDA-Public Use
  Company Number: 200515886GDDC

PATIENT
  Age: 47 Year
  Sex: Female

DRUGS (9)
  1. LEFLUNOMIDE [Suspect]
     Indication: CYTOMEGALOVIRUS INFECTION
  2. FOSCARNET [Concomitant]
  3. GANCICLOVIR [Concomitant]
     Indication: CYTOMEGALOVIRUS INFECTION
     Dosage: DOSE: 5 MG/KG/DAY
     Route: 042
  4. CIDOFOVIR [Concomitant]
     Indication: CYTOMEGALOVIRUS INFECTION
     Dosage: DOSE: UNK
  5. CORTICOSTEROIDS [Concomitant]
     Dosage: DOSE: UNK
  6. CYCLOSPORINE [Concomitant]
     Dosage: DOSE: UNK
  7. MYCOPHENOLATE [Concomitant]
     Dosage: DOSE: UNK
  8. THALIDOMIDE [Concomitant]
     Dosage: DOSE: UNK
  9. RITUXIMAB [Concomitant]

REACTIONS (7)
  - CACHEXIA [None]
  - CYTOMEGALOVIRUS INFECTION [None]
  - ENTEROCOCCAL BACTERAEMIA [None]
  - HEPATIC FAILURE [None]
  - HERPES SIMPLEX [None]
  - HYPERBILIRUBINAEMIA [None]
  - PANCYTOPENIA [None]
